FAERS Safety Report 15159519 (Version 1)
Quarter: 2018Q3

REPORT INFORMATION
  Report Type: Spontaneous
  Country: US (occurrence: US)
  Receive Date: 20180718
  Receipt Date: 20180718
  Transmission Date: 20181010
  Serious: No
  Sender: FDA-Public Use
  Company Number: US-B.I. PHARMACEUTICALS,INC./RIDGEFIELD-2018-BI-036203

PATIENT
  Age: 54 Year
  Sex: Female

DRUGS (4)
  1. JARDIANCE [Suspect]
     Active Substance: EMPAGLIFLOZIN
     Indication: TYPE 2 DIABETES MELLITUS
     Dosage: FORMULATION: TABLET; ? ACTION(S) TAKEN WITH PRODUCT: DRUG WITHDRAWN
     Route: 048
     Dates: start: 201604, end: 201801
  2. LISINOPRIL. [Concomitant]
     Active Substance: LISINOPRIL
     Indication: RENAL LITHIASIS PROPHYLAXIS
     Dosage: ONCE A DAY;  FORMULATION: TABLET;
     Route: 048
     Dates: start: 201412
  3. INSULIN [Concomitant]
     Active Substance: INSULIN NOS
     Indication: TYPE 2 DIABETES MELLITUS
     Dosage: ONCE IN THE MORNING;  FORM STRENGTH: 30 UNITS; FORMULATION: SUBCUTANEOUS
     Route: 058
     Dates: end: 201801
  4. ATORVASTATIN [Concomitant]
     Active Substance: ATORVASTATIN
     Indication: BLOOD CHOLESTEROL INCREASED
     Dosage: ONCE A DAY;  FORM STRENGTH: 80 MG; FORMULATION: TABLET
     Route: 048
     Dates: start: 201412

REACTIONS (7)
  - Urinary tract infection [Recovered/Resolved]
  - Disturbance in sexual arousal [Recovered/Resolved]
  - Fungal infection [Recovered/Resolved]
  - Vaginal disorder [Recovered/Resolved]
  - Vaginal haemorrhage [Recovered/Resolved]
  - Vaginal laceration [Recovered/Resolved]
  - Perineal disorder [Recovered/Resolved]

NARRATIVE: CASE EVENT DATE: 201606
